FAERS Safety Report 7986513-4 (Version None)
Quarter: 2011Q4

REPORT INFORMATION
  Report Type: 
  Country: None (occurrence: None)
  Receive Date: 20111216
  Receipt Date: 20110203
  Transmission Date: 20120403
  Serious: No
  Sender: FDA-Public Use
  Company Number: US-BRISTOL-MYERS SQUIBB COMPANY-15527815

PATIENT
  Sex: Female

DRUGS (3)
  1. LEXAPRO [Concomitant]
  2. CLONOPIN [Concomitant]
  3. ABILIFY [Suspect]
     Indication: DEPRESSION
     Dosage: DOSE TAKEN UPTO 4 MG.

REACTIONS (1)
  - TARDIVE DYSKINESIA [None]
